FAERS Safety Report 5200144-0 (Version None)
Quarter: 2007Q1

REPORT INFORMATION
  Report Type: 
  Country: None (occurrence: None)
  Receive Date: 20070105
  Receipt Date: 20061228
  Transmission Date: 20070707
  Serious: Yes (Death)
  Sender: FDA-Public Use
  Company Number: JP-ELI_LILLY_AND_COMPANY-JP200701000531

PATIENT
  Age: 73 Year
  Sex: Male
  Weight: 50 kg

DRUGS (13)
  1. LISPRO 50LIS50NPL [Suspect]
     Indication: DIABETES MELLITUS NON-INSULIN-DEPENDENT
     Dosage: 14 U, EACH MORNING
     Dates: start: 20050707, end: 20050710
  2. LISPRO 50LIS50NPL [Suspect]
     Dosage: 12 U, EACH EVENING
     Dates: start: 20050707, end: 20050710
  3. LISPRO 50LIS50NPL [Suspect]
     Dosage: 8 U, EACH MORNING
     Dates: start: 20050711, end: 20050719
  4. LISPRO 50LIS50NPL [Suspect]
     Dosage: 4 U, EACH EVENING
     Dates: start: 20050711, end: 20050719
  5. LISPRO 50LIS50NPL [Suspect]
     Dosage: 12 U, EACH MORNING
     Dates: start: 20050720, end: 20050727
  6. LISPRO 50LIS50NPL [Suspect]
     Dosage: 4 U, EACH EVENING
     Dates: start: 20050720, end: 20050727
  7. LISPRO 50LIS50NPL [Suspect]
     Dosage: 10 U, EACH MORNING
     Dates: start: 20050728, end: 20050804
  8. LISPRO 50LIS50NPL [Suspect]
     Dosage: 2 U, EACH EVENING
     Dates: start: 20050728, end: 20050804
  9. LISPRO 50LIS50NPL [Suspect]
     Dosage: 10 U, EACH MORNING
     Dates: start: 20050805, end: 20050808
  10. LISPRO 50LIS50NPL [Suspect]
     Dosage: 4 U, EACH EVENING
     Dates: start: 20050805, end: 20050808
  11. LISPRO 50LIS50NPL [Suspect]
     Dosage: 10 U, EACH MORNING
     Dates: start: 20050809, end: 20051001
  12. LISPRO 50LIS50NPL [Suspect]
     Dosage: 6 U, EACH EVENING
     Dates: start: 20050809, end: 20051001
  13. MICARDIS [Concomitant]
     Indication: HYPERTENSION
     Dosage: 20 MG, DAILY (1/D)
     Route: 048
     Dates: end: 20050802

REACTIONS (1)
  - CEREBROVASCULAR DISORDER [None]
